FAERS Safety Report 6078344-X (Version None)
Quarter: 2009Q1

REPORT INFORMATION
  Report Type: 
  Country: None (occurrence: None)
  Receive Date: 20090213
  Receipt Date: 20040126
  Transmission Date: 20090719
  Serious: Yes (Death)
  Sender: FDA-Public Use
  Company Number: NL-GENENTECH-277279

PATIENT

DRUGS (5)
  1. RITUXIMAB [Suspect]
     Indication: MANTLE CELL LYMPHOMA
  2. CYCLOPHOSPHAMIDE [Suspect]
     Indication: MANTLE CELL LYMPHOMA
  3. DOXORUBICIN HCL [Suspect]
     Indication: MANTLE CELL LYMPHOMA
  4. PREDNISONE [Suspect]
     Indication: MANTLE CELL LYMPHOMA
  5. VINCRISTINE [Suspect]
     Indication: MANTLE CELL LYMPHOMA

REACTIONS (1)
  - CARDIAC ARREST [None]
